FAERS Safety Report 14935084 (Version 1)
Quarter: 2018Q2

REPORT INFORMATION
  Report Type: Spontaneous
  Country: FR (occurrence: FR)
  Receive Date: 20180524
  Receipt Date: 20180524
  Transmission Date: 20180711
  Serious: Yes (Hospitalization)
  Sender: FDA-Public Use
  Company Number: FR-PFIZER INC-2018209926

PATIENT
  Age: 80 Year
  Sex: Male
  Weight: 75 kg

DRUGS (13)
  1. TAHOR [Suspect]
     Active Substance: ATORVASTATIN CALCIUM
     Indication: DYSLIPIDAEMIA
     Dosage: 40 MG, 1X/DAY IN THE EVENING
     Route: 048
     Dates: end: 20180315
  2. PENICILLINE G PANPHARMA [Suspect]
     Active Substance: PENICILLIN G SODIUM
     Indication: INFECTION
     Dosage: 5 MILLION IU, 4X/DAY (EVERY 6 HOURS)
     Route: 042
     Dates: start: 20180306, end: 20180312
  3. PERMIXON [Suspect]
     Active Substance: HERBALS\SAW PALMETTO
     Indication: MICTURITION DISORDER
     Dosage: 160 MG, 2X/DAY (IN THE MORNING AND THE EVENING)
     Route: 048
     Dates: end: 20180315
  4. CORVASAL /00547101/ [Concomitant]
     Active Substance: MOLSIDOMINE
     Dosage: 4 MG, 3X/DAY (IN THE MORNING, AT NOON, AND IN THE EVENING)
  5. ELIQUIS [Concomitant]
     Active Substance: APIXABAN
     Dosage: 5 MG, 2X/DAY (IN THE MORNING AND THE EVENING)
  6. METFORMINE ARROW [Suspect]
     Active Substance: METFORMIN HYDROCHLORIDE
     Indication: TYPE 2 DIABETES MELLITUS
     Dosage: 1000 MG, 2X/DAY (IN THE MORNING AND THE EVENING)
     Route: 048
     Dates: end: 20180315
  7. COVERAM [Suspect]
     Active Substance: AMLODIPINE\PERINDOPRIL
     Indication: HYPERTENSION
     Dosage: 1 DF, 1X/DAY IN THE MORNING
     Route: 048
     Dates: end: 20180315
  8. ILOMEDINE [Suspect]
     Active Substance: ILOPROST TROMETHAMINE
     Indication: PERIPHERAL ISCHAEMIA
     Dosage: 1 NG/KG/MIN
     Route: 042
     Dates: start: 20180306, end: 20180311
  9. AVODART [Concomitant]
     Active Substance: DUTASTERIDE
     Dosage: 1 DF, DAILY
  10. KARDEGIC [Concomitant]
     Active Substance: ASPIRIN DL-LYSINE
     Dosage: 75 MG, 1X/DAY IN THE MORNING
  11. SECTRAL [Concomitant]
     Active Substance: ACEBUTOLOL HYDROCHLORIDE
     Dosage: 500 MG, 1X/DAY IN THE MORNING
  12. LANSOPRAZOLE. [Concomitant]
     Active Substance: LANSOPRAZOLE
     Dosage: 15 MG, 1X/DAY IN THE EVENING
  13. TRAMADOL. [Concomitant]
     Active Substance: TRAMADOL
     Indication: PAIN
     Dosage: 2 GTT EVERY 5 HOURS IF PAIN

REACTIONS (2)
  - Cholestasis [Recovering/Resolving]
  - Hepatocellular injury [Recovering/Resolving]

NARRATIVE: CASE EVENT DATE: 20180307
